FAERS Safety Report 20545189 (Version 1)
Quarter: 2022Q1

REPORT INFORMATION
  Report Type: Spontaneous
  Country: US (occurrence: US)
  Receive Date: 20220303
  Receipt Date: 20220303
  Transmission Date: 20220423
  Serious: No
  Sender: FDA-Public Use
  Company Number: US-ALLERGAN-2101919US

PATIENT

DRUGS (1)
  1. RESTASIS [Suspect]
     Active Substance: CYCLOSPORINE
     Indication: Dry eye
     Dosage: UNK
     Route: 047
     Dates: start: 202012

REACTIONS (5)
  - Accidental exposure to product [Unknown]
  - Inability to afford medication [Unknown]
  - Therapy interrupted [Unknown]
  - Product packaging issue [Unknown]
  - Product packaging quantity issue [Unknown]
